FAERS Safety Report 8998560 (Version 2)
Quarter: 2014Q1

REPORT INFORMATION
  Report Type: Report from Study
  Country: US (occurrence: US)
  Receive Date: 20130103
  Receipt Date: 20140121
  Transmission Date: 20141002
  Serious: Yes (Hospitalization)
  Sender: FDA-Public Use
  Company Number: US-GLAXOSMITHKLINE-A1006799A

PATIENT
  Age: 65 Year
  Sex: Male

DRUGS (17)
  1. OFATUMUMAB [Suspect]
     Indication: CHRONIC LYMPHOCYTIC LEUKAEMIA
     Dosage: 1000MG WEEKLY
     Route: 042
     Dates: start: 20120321
  2. METHYLPREDNISOLONE [Suspect]
     Indication: CHRONIC LYMPHOCYTIC LEUKAEMIA
  3. ALEMTUZUMAB [Suspect]
     Indication: CHRONIC LYMPHOCYTIC LEUKAEMIA
  4. ACYCLOVIR [Concomitant]
  5. AMLODIPINE [Concomitant]
  6. ATENOLOL [Concomitant]
  7. BENADRYL [Concomitant]
     Route: 048
  8. FISH OIL [Concomitant]
  9. KETOCONAZOLE [Concomitant]
  10. MEPRON [Concomitant]
  11. MULTIVITAMIN [Concomitant]
  12. PRAVASTATIN [Concomitant]
  13. PREDNISONE [Concomitant]
  14. TYLENOL [Concomitant]
  15. VITAMIN D3 [Concomitant]
  16. VORICONAZOLE [Concomitant]
  17. ZYRTEC [Concomitant]

REACTIONS (5)
  - Fatigue [Recovered/Resolved]
  - Chest pain [Recovered/Resolved]
  - Pyrexia [Recovered/Resolved]
  - Dizziness [Recovered/Resolved]
  - Pneumonia [Recovered/Resolved]
